FAERS Safety Report 8245863 (Version 5)
Quarter: 2013Q1

REPORT INFORMATION
  Report Type: Spontaneous
  Country: US (occurrence: US)
  Receive Date: 20111115
  Receipt Date: 20130117
  Transmission Date: 20140127
  Serious: Yes (Hospitalization, Disabling, Other)
  Sender: FDA-Public Use
  Company Number: US-009507513-1111USA01448

PATIENT
  Sex: 0

DRUGS (7)
  1. FOSAMAX [Suspect]
     Indication: OSTEOPOROSIS
     Dosage: UNK UNK, QD
     Route: 048
     Dates: start: 1998, end: 200905
  2. FOSAMAX [Suspect]
     Dosage: 70 MG, QW
     Route: 048
     Dates: start: 20010720, end: 20060608
  3. FOSAMAX [Suspect]
     Dosage: 10 MG, UNK
     Dates: start: 20000213, end: 20000921
  4. FOSAMAX D [Suspect]
     Indication: OSTEOPOROSIS
     Dosage: 70 MG, QW
     Route: 048
     Dates: start: 20071121, end: 20090617
  5. FOSAMAX [Suspect]
     Indication: OSTEOPOROSIS
     Dosage: 70 MG, QW
     Route: 048
  6. BONIVA [Concomitant]
     Indication: OSTEOPOROSIS
     Dosage: 150 MG, QM
  7. FORTEO [Concomitant]
     Indication: OSTEOPOROSIS
     Dosage: 20 MICROGRAM, QD
     Route: 058
     Dates: start: 200905, end: 201105

REACTIONS (47)
  - Femoral neck fracture [Not Recovered/Not Resolved]
  - Open reduction of fracture [Not Recovered/Not Resolved]
  - Fall [Unknown]
  - Adverse event [Not Recovered/Not Resolved]
  - Herpes zoster [Unknown]
  - Vitamin D deficiency [Unknown]
  - Tooth disorder [Unknown]
  - Gingival disorder [Unknown]
  - Injury [Unknown]
  - Excoriation [Unknown]
  - Staphylococcal infection [Unknown]
  - Haematoma [Unknown]
  - Intervertebral disc degeneration [Unknown]
  - Spondylolysis [Unknown]
  - Aortic calcification [Unknown]
  - Atrioventricular block first degree [Unknown]
  - Electrocardiogram abnormal [Unknown]
  - Osteopenia [Unknown]
  - Thrombocytopenia [Unknown]
  - Ovarian mass [Unknown]
  - Spondylolisthesis [Unknown]
  - Antinuclear antibody positive [Unknown]
  - Treatment noncompliance [Unknown]
  - Costochondritis [Unknown]
  - Lumbar spinal stenosis [Unknown]
  - Spinal osteoarthritis [Unknown]
  - Intervertebral disc protrusion [Unknown]
  - Intervertebral disc protrusion [Unknown]
  - Intervertebral disc degeneration [Unknown]
  - Cervical spinal stenosis [Unknown]
  - Osteoarthritis [Unknown]
  - Tooth extraction [Unknown]
  - Dental implantation [Unknown]
  - Body height decreased [Unknown]
  - Pain [Unknown]
  - Anxiety [Unknown]
  - Spinal fracture [Unknown]
  - Wrist fracture [Unknown]
  - Large intestine polyp [Unknown]
  - Gastritis [Unknown]
  - Muscular weakness [Unknown]
  - Melaena [Unknown]
  - Fatigue [Unknown]
  - Large intestine polyp [Unknown]
  - Anaemia [Unknown]
  - Drug ineffective [Unknown]
  - Gastrooesophageal reflux disease [Unknown]
